FAERS Safety Report 7434771-7 (Version None)
Quarter: 2011Q2

REPORT INFORMATION
  Report Type: 
  Country: None (occurrence: None)
  Receive Date: 20110425
  Receipt Date: 20110418
  Transmission Date: 20111010
  Serious: Yes (Hospitalization, Other)
  Sender: FDA-Public Use
  Company Number: US-B.I. PHARMACEUTICALS,INC./RIDGEFIELD-2011-BP-10411BP

PATIENT
  Sex: Female

DRUGS (16)
  1. FUROSEMIDE [Concomitant]
  2. IPOTROPIUM [Concomitant]
     Indication: CHRONIC OBSTRUCTIVE PULMONARY DISEASE
  3. NEXIUM [Concomitant]
     Indication: GASTROOESOPHAGEAL REFLUX DISEASE
     Dosage: 40 MG
  4. LORAZEPAM [Concomitant]
     Indication: INSOMNIA
  5. SINGULAIR [Concomitant]
     Indication: CHRONIC OBSTRUCTIVE PULMONARY DISEASE
  6. NITROGLYCERIN [Concomitant]
     Indication: CHEST PAIN
  7. OXYCODONE [Concomitant]
     Indication: ARTHRALGIA
  8. SIMVASTATIN [Concomitant]
     Indication: BLOOD CHOLESTEROL INCREASED
     Dosage: 20 MG
  9. SPIRIVA [Suspect]
     Indication: CHRONIC OBSTRUCTIVE PULMONARY DISEASE
     Dosage: 18 MCG
     Route: 055
     Dates: start: 20060101
  10. ALBUTEROL [Concomitant]
     Indication: CHRONIC OBSTRUCTIVE PULMONARY DISEASE
  11. PROAIR HFA [Concomitant]
     Indication: CHRONIC OBSTRUCTIVE PULMONARY DISEASE
  12. FLOVENT [Concomitant]
     Indication: CHRONIC OBSTRUCTIVE PULMONARY DISEASE
  13. DILANTIN [Concomitant]
     Indication: CONVULSION
     Dosage: 400 MG
  14. LORAZEPAM [Concomitant]
     Indication: ANXIETY
     Dosage: 1.5 MG
  15. OXYCODONE [Concomitant]
     Indication: PAIN IN EXTREMITY
  16. LIPITOR [Concomitant]
     Indication: BLOOD CHOLESTEROL INCREASED

REACTIONS (6)
  - BLOOD GLUCOSE INCREASED [None]
  - PULMONARY HAEMORRHAGE [None]
  - DYSPNOEA [None]
  - HYPERTENSION [None]
  - ATRIOVENTRICULAR BLOCK [None]
  - PNEUMONIA [None]
